FAERS Safety Report 11841808 (Version 1)
Quarter: 2015Q4

REPORT INFORMATION
  Report Type: Spontaneous
  Country: DE (occurrence: DE)
  Receive Date: 20151216
  Receipt Date: 20151216
  Transmission Date: 20160305
  Serious: Yes (Death)
  Sender: FDA-Public Use
  Company Number: DE-PFIZER INC-2015444984

PATIENT
  Age: 53 Year

DRUGS (8)
  1. IBUPROFEN. [Suspect]
     Active Substance: IBUPROFEN
     Dosage: DAILY (1X 400 MG)
  2. EPTIFIBATIDE. [Concomitant]
     Active Substance: EPTIFIBATIDE
     Dosage: 15.8 MG, UNK
     Route: 042
  3. TICAGRELOR [Concomitant]
     Active Substance: TICAGRELOR
     Dosage: 180 MG, UNK
     Route: 048
  4. ASA [Interacting]
     Active Substance: ASPIRIN
     Dosage: 100 MG, UNK
  5. TICAGRELOR [Concomitant]
     Active Substance: TICAGRELOR
     Dosage: 2X 90 MG
  6. CERTOPARIN SODIUM [Concomitant]
     Active Substance: CERTOPARIN SODIUM
     Dosage: 2X 3,000 U
  7. ASA [Interacting]
     Active Substance: ASPIRIN
     Dosage: 500 MG, 2X/DAY
     Route: 042
  8. DEXAMETHASONE. [Concomitant]
     Active Substance: DEXAMETHASONE
     Dosage: 3X 4MG

REACTIONS (3)
  - Vascular stent thrombosis [Fatal]
  - Brain stem infarction [Fatal]
  - Drug interaction [Fatal]
